FAERS Safety Report 4493039-1 (Version None)
Quarter: 2004Q4

REPORT INFORMATION
  Report Type: 
  Country: None (occurrence: None)
  Receive Date: 20041020
  Receipt Date: 20040721
  Transmission Date: 20050328
  Serious: No
  Sender: FDA-Public Use
  Company Number: 601422

PATIENT
  Age: 63 Year
  Sex: Male
  Weight: 90.7194 kg

DRUGS (16)
  1. ARALAST [Suspect]
     Indication: ALPHA-1 ANTI-TRYPSIN DEFICIENCY
     Dosage: 11.9 GM; ONCE, INTRAVENOUS
     Route: 042
     Dates: start: 20040708, end: 20040708
  2. OXYGEN [Concomitant]
  3. SULFASALAZINE [Concomitant]
  4. CELEBREX [Concomitant]
  5. PREVACID [Concomitant]
  6. SINGULAIR [Concomitant]
  7. K-DUR 10 [Concomitant]
  8. CITRACAL [Concomitant]
  9. ALTACE [Concomitant]
  10. HYDROCHLOROTHIAZIDE [Concomitant]
  11. FLOMAX ^CSL^ [Concomitant]
  12. MIACALCIN [Concomitant]
  13. FORTEO [Concomitant]
  14. ASPIRIN [Concomitant]
  15. PREDNISONE [Concomitant]
  16. MUCINEX [Concomitant]

REACTIONS (1)
  - LISTLESS [None]
